FAERS Safety Report 24337959 (Version 1)
Quarter: 2024Q3

REPORT INFORMATION
  Report Type: Spontaneous
  Country: NL (occurrence: NL)
  Receive Date: 20240919
  Receipt Date: 20240919
  Transmission Date: 20241017
  Serious: Yes (Disabling)
  Sender: RANBAXY
  Company Number: NL-SUN PHARMACEUTICAL INDUSTRIES LTD-2024RR-468606

PATIENT
  Age: 68 Year
  Sex: Male
  Weight: 82 kg

DRUGS (1)
  1. TOBRAMYCIN [Suspect]
     Active Substance: TOBRAMYCIN\TOBRAMYCIN SULFATE
     Indication: Pneumonia pseudomonal
     Dosage: 3X PER DAY
     Route: 065
     Dates: start: 20220813, end: 20230103

REACTIONS (4)
  - Metamorphopsia [Not Recovered/Not Resolved]
  - Vertigo [Not Recovered/Not Resolved]
  - Deafness [Not Recovered/Not Resolved]
  - Nausea [Recovered/Resolved]
